FAERS Safety Report 5568571-X (Version None)
Quarter: 2007Q4

REPORT INFORMATION
  Report Type: 
  Country: None (occurrence: None)
  Receive Date: 20071220
  Receipt Date: 20071211
  Transmission Date: 20080405
  Serious: Yes (Congenital Anomaly)
  Sender: FDA-Public Use
  Company Number: US-ROCHE-491891

PATIENT
  Sex: Female
  Weight: 3 kg

DRUGS (1)
  1. ACCUTANE [Suspect]
     Dates: start: 19940131, end: 19940601

REACTIONS (1)
  - SICKLE CELL ANAEMIA [None]
